FAERS Safety Report 10213257 (Version 1)
Quarter: 2014Q2

REPORT INFORMATION
  Report Type: Spontaneous
  Country: US (occurrence: None)
  Receive Date: 20140529
  Receipt Date: 20140529
  Transmission Date: 20141212
  Serious: Yes (Hospitalization)
  Sender: FDA-Public Use
  Company Number: UNT-2014-000676

PATIENT
  Age: 75 Year
  Sex: Female
  Weight: 82.1 kg

DRUGS (2)
  1. REMODULIN (TREPROSTINIL SODIUM) INJECTION , 2.5MG/ML [Suspect]
     Indication: PULMONARY ARTERIAL HYPERTENSION
     Route: 058
     Dates: start: 20140211
  2. TRACLEER [Concomitant]

REACTIONS (3)
  - Pulmonary arterial hypertension [None]
  - Swelling [None]
  - Pulmonary oedema [None]
